FAERS Safety Report 4515935-9 (Version None)
Quarter: 2004Q4

REPORT INFORMATION
  Report Type: 
  Country: None (occurrence: None)
  Receive Date: 20041201
  Receipt Date: 20041116
  Transmission Date: 20050328
  Serious: Yes (Death)
  Sender: FDA-Public Use
  Company Number: 2004S1003417

PATIENT
  Age: 56 Year
  Sex: Male

DRUGS (5)
  1. CLOZAPINE [Suspect]
     Indication: SCHIZOPHRENIA
     Dosage: 200MG BID, ORAL
     Route: 048
     Dates: start: 20010101, end: 20040301
  2. CLOZAPINE [Suspect]
     Indication: SCHIZOPHRENIA
     Dosage: 200MG BID, ORAL
     Route: 048
     Dates: start: 20040701, end: 20041101
  3. MULTI-VITAMINS [Concomitant]
  4. ATORVASTATIN [Concomitant]
  5. GLYCERIN [Concomitant]

REACTIONS (1)
  - CHOKING [None]
